FAERS Safety Report 5145114-6 (Version None)
Quarter: 2006Q4

REPORT INFORMATION
  Report Type: 
  Country: None (occurrence: None)
  Receive Date: 20061107
  Receipt Date: 20061026
  Transmission Date: 20070319
  Serious: Yes (Hospitalization)
  Sender: FDA-Public Use
  Company Number: FR-GILEAD-2006-0010557

PATIENT
  Age: 52 Year
  Sex: Male
  Weight: 55 kg

DRUGS (7)
  1. TRUVADA [Suspect]
     Route: 048
     Dates: start: 20060829, end: 20060912
  2. INVIRASE [Suspect]
     Route: 048
     Dates: start: 20060829, end: 20060912
  3. NORVIR [Suspect]
     Route: 048
     Dates: start: 20060829, end: 20060912
  4. LOGIMAX [Concomitant]
  5. ESIDRIX [Concomitant]
  6. TRIATEC [Concomitant]
  7. BACTRIM [Concomitant]

REACTIONS (3)
  - MUSCULOSKELETAL STIFFNESS [None]
  - NAUSEA [None]
  - RENAL FAILURE ACUTE [None]
